FAERS Safety Report 18898566 (Version 2)
Quarter: 2021Q1

REPORT INFORMATION
  Report Type: Other
  Country: US (occurrence: US)
  Receive Date: 20210216
  Receipt Date: 20210219
  Transmission Date: 20210420
  Serious: No
  Sender: FDA-Public Use
  Company Number: US-ROCHE-2770701

PATIENT
  Sex: Male

DRUGS (1)
  1. OCREVUS [Suspect]
     Active Substance: OCRELIZUMAB
     Indication: RELAPSING MULTIPLE SCLEROSIS
     Dosage: 300 MG ON DAY 1 AND 15, THEN 600 MG ONCE IN 6 MONTHS
     Route: 042
     Dates: start: 20180809

REACTIONS (1)
  - COVID-19 [Recovered/Resolved]
